FAERS Safety Report 7927351-8 (Version None)
Quarter: 2011Q4

REPORT INFORMATION
  Report Type: 
  Country: None (occurrence: None)
  Receive Date: 20111118
  Receipt Date: 20111111
  Transmission Date: 20120403
  Serious: Yes (Death, Hospitalization, Other)
  Sender: FDA-Public Use
  Company Number: PHHY2011CN100288

PATIENT
  Age: 45 Year
  Sex: Female

DRUGS (2)
  1. IMATINIB MESYLATE [Suspect]
     Indication: ACUTE MEGAKARYOCYTIC LEUKAEMIA
     Dosage: 600 MG/DAY
     Route: 048
  2. ACLARUBICIN [Concomitant]
     Dosage: 10 MG, DAY

REACTIONS (5)
  - PYREXIA [None]
  - FUNGAL INFECTION [None]
  - ACUTE MEGAKARYOCYTIC LEUKAEMIA [None]
  - DYSPNOEA [None]
  - BONE MARROW FAILURE [None]
